FAERS Safety Report 9555491 (Version 1)
Quarter: 2013Q3

REPORT INFORMATION
  Report Type: Spontaneous
  Country: US (occurrence: None)
  Receive Date: 20130821
  Receipt Date: 20130821
  Transmission Date: 20140515
  Serious: Yes (Other)
  Sender: FDA-Public Use
  Company Number: DKLU1083045

PATIENT
  Sex: 0

DRUGS (1)
  1. INDOCIN (INDOMETHACIN FOR INJECTION) (INDOMETHACIN) [Suspect]
     Indication: PATENT DUCTUS ARTERIOSUS

REACTIONS (1)
  - Haemorrhage intracranial [None]
